FAERS Safety Report 9795866 (Version 4)
Quarter: 2014Q1

REPORT INFORMATION
  Report Type: Spontaneous
  Country: DE (occurrence: DE)
  Receive Date: 20140103
  Receipt Date: 20140319
  Transmission Date: 20141002
  Serious: No
  Sender: FDA-Public Use
  Company Number: DE-GALDERMA-DE13004268

PATIENT
  Age: 47 Year
  Sex: Male

DRUGS (3)
  1. MIRVASO (BRIMONIDINE) TOPICAL GEL, 0.33% [Suspect]
     Indication: ROSACEA
     Dosage: 0.33%
     Route: 061
     Dates: start: 20131101, end: 20131113
  2. ORACEA [Suspect]
     Indication: ROSACEA
     Route: 048
     Dates: end: 201312
  3. WASH [Concomitant]
     Route: 061

REACTIONS (5)
  - Condition aggravated [Recovered/Resolved]
  - Rash macular [Recovered/Resolved]
  - Erythema [Recovered/Resolved]
  - Flushing [Recovered/Resolved]
  - Skin burning sensation [Recovered/Resolved]
